FAERS Safety Report 5713855-5 (Version None)
Quarter: 2008Q2

REPORT INFORMATION
  Report Type: 
  Country: None (occurrence: None)
  Receive Date: 20080421
  Receipt Date: 20080411
  Transmission Date: 20081010
  Serious: Yes (Disabling, Other)
  Sender: FDA-Public Use
  Company Number: WAES 0804FRA00032

PATIENT
  Age: 59 Year
  Sex: Male

DRUGS (2)
  1. JANUVIA [Suspect]
     Indication: TYPE 2 DIABETES MELLITUS
     Dosage: 100 MG/DAILY PO
     Route: 048
     Dates: start: 20071113, end: 20080403
  2. METFORMIN HCL [Concomitant]

REACTIONS (3)
  - HYPOGLYCAEMIA [None]
  - MALAISE [None]
  - PRURITUS GENERALISED [None]
